FAERS Safety Report 6731620-7 (Version None)
Quarter: 2010Q2

REPORT INFORMATION
  Report Type: 
  Country: None (occurrence: None)
  Receive Date: 20100519
  Receipt Date: 20100505
  Transmission Date: 20101027
  Serious: Yes (Other)
  Sender: FDA-Public Use
  Company Number: BR-BAYER-201014395LA

PATIENT
  Age: 66 Year
  Sex: Female

DRUGS (3)
  1. BETAFERON [Suspect]
     Indication: MULTIPLE SCLEROSIS
     Dosage: AS USED: 1 ML
     Route: 058
     Dates: start: 19960101, end: 20100101
  2. WARFARIN SODIUM [Interacting]
  3. DIOSMIN [Concomitant]
     Route: 065

REACTIONS (5)
  - HYPOAESTHESIA [None]
  - INTERNATIONAL NORMALISED RATIO ABNORMAL [None]
  - PAIN IN EXTREMITY [None]
  - PULMONARY EMBOLISM [None]
  - THROMBOSIS [None]
